FAERS Safety Report 9346521 (Version 2)
Quarter: 2013Q2

REPORT INFORMATION
  Report Type: Spontaneous
  Country: FR (occurrence: FR)
  Receive Date: 20130613
  Receipt Date: 20130627
  Transmission Date: 20140414
  Serious: Yes (Hospitalization, Other)
  Sender: FDA-Public Use
  Company Number: FR-ABBOTT-13P-056-1100948-00

PATIENT
  Age: 44 Year
  Sex: Male
  Weight: 70 kg

DRUGS (3)
  1. HUMIRA [Suspect]
     Indication: CROHN^S DISEASE
     Route: 058
     Dates: start: 201208
  2. HUMIRA [Suspect]
     Indication: COLITIS ULCERATIVE
     Route: 058
     Dates: start: 201301, end: 201302
  3. EFFEXOR [Concomitant]
     Indication: ANTIDEPRESSANT THERAPY

REACTIONS (8)
  - Acne [Unknown]
  - Rash macular [Unknown]
  - Vomiting [Unknown]
  - Pruritus [Unknown]
  - Blood pressure increased [Unknown]
  - Overdose [Unknown]
  - Skin reaction [Unknown]
  - Blister [Unknown]
